FAERS Safety Report 8443714-9 (Version None)
Quarter: 2012Q2

REPORT INFORMATION
  Report Type: 
  Country: None (occurrence: None)
  Receive Date: 20120618
  Receipt Date: 20120606
  Transmission Date: 20120825
  Serious: Yes (Other)
  Sender: FDA-Public Use
  Company Number: IT-ELI_LILLY_AND_COMPANY-IT200911000063

PATIENT
  Sex: Male

DRUGS (7)
  1. STRATTERA [Suspect]
     Indication: ATTENTION DEFICIT/HYPERACTIVITY DISORDER
     Dosage: 10 MG, DAILY (1/D)
     Route: 065
     Dates: start: 20090713, end: 20090720
  2. ACETYLCARNITINE HYDROCHLORIDE [Concomitant]
  3. STRATTERA [Suspect]
     Dosage: 25 MG, DAILY (1/D)
     Route: 065
     Dates: start: 20090720, end: 20090901
  4. STRATTERA [Suspect]
     Dosage: 45 MG, QD
     Route: 048
     Dates: start: 20101229
  5. STRATTERA [Suspect]
     Dosage: 40 MG, DAILY (1/D)
     Route: 065
     Dates: start: 20090910, end: 20090910
  6. STRATTERA [Suspect]
     Dosage: 25 MG, DAILY (1/D)
     Route: 065
     Dates: start: 20090910
  7. NIAPRAZINE [Concomitant]

REACTIONS (8)
  - DECREASED APPETITE [None]
  - MOOD SWINGS [None]
  - PSYCHOMOTOR HYPERACTIVITY [None]
  - INCONTINENCE [None]
  - BLOOD PRESSURE DECREASED [None]
  - WEIGHT DECREASED [None]
  - IRRITABILITY [None]
  - POOR QUALITY SLEEP [None]
